FAERS Safety Report 9422461 (Version 7)
Quarter: 2013Q3

REPORT INFORMATION
  Report Type: Spontaneous
  Country: US (occurrence: US)
  Receive Date: 20130726
  Receipt Date: 20130902
  Transmission Date: 20140515
  Serious: Yes (Other)
  Sender: FDA-Public Use
  Company Number: US-JNJFOC-20130711379

PATIENT
  Age: 77 Year
  Sex: Female
  Weight: 47.63 kg

DRUGS (4)
  1. XARELTO [Suspect]
     Indication: CEREBROVASCULAR ACCIDENT PROPHYLAXIS
     Route: 048
     Dates: start: 20130604, end: 20130708
  2. XARELTO [Suspect]
     Indication: ATRIAL FIBRILLATION
     Route: 048
     Dates: start: 20130604, end: 20130708
  3. AMIODARONE [Concomitant]
     Route: 065
  4. DILTIAZEM [Concomitant]
     Route: 065

REACTIONS (1)
  - Splenic haemorrhage [Recovered/Resolved]
